FAERS Safety Report 18286576 (Version 4)
Quarter: 2020Q4

REPORT INFORMATION
  Report Type: Spontaneous
  Country: US (occurrence: US)
  Receive Date: 20200920
  Receipt Date: 20201129
  Transmission Date: 20210113
  Serious: Yes (Other)
  Sender: FDA-Public Use
  Company Number: US-ROCHE-2677454

PATIENT
  Age: 59 Year
  Sex: Male

DRUGS (3)
  1. XELODA [Suspect]
     Active Substance: CAPECITABINE
     Route: 048
     Dates: start: 202006
  2. XELODA [Suspect]
     Active Substance: CAPECITABINE
     Indication: PRODUCT USED FOR UNKNOWN INDICATION
     Route: 048
     Dates: start: 202008
  3. XELODA [Suspect]
     Active Substance: CAPECITABINE
     Dosage: OFF XELODA MEDICINE
     Route: 048
     Dates: start: 202009

REACTIONS (6)
  - Intra-abdominal fluid collection [Unknown]
  - Dyspnoea [Unknown]
  - Oedema [Unknown]
  - Fluid retention [Not Recovered/Not Resolved]
  - Fatigue [Unknown]
  - Urine output decreased [Unknown]

NARRATIVE: CASE EVENT DATE: 20200902
